FAERS Safety Report 14609709 (Version 1)
Quarter: 2018Q1

REPORT INFORMATION
  Report Type: Spontaneous
  Country: US (occurrence: US)
  Receive Date: 20180307
  Receipt Date: 20180307
  Transmission Date: 20180509
  Serious: No
  Sender: FDA-Public Use
  Company Number: US-GALDERMA-US17006316

PATIENT
  Age: 48 Year
  Sex: Female

DRUGS (1)
  1. TRI-LUMA [Suspect]
     Active Substance: FLUOCINOLONE ACETONIDE\HYDROQUINONE\TRETINOIN
     Indication: SKIN HYPERPIGMENTATION
     Route: 061
     Dates: start: 20170807, end: 20170809

REACTIONS (7)
  - Dermatitis allergic [Recovering/Resolving]
  - Erythema [Recovering/Resolving]
  - Fluid retention [Recovering/Resolving]
  - Swelling face [Recovering/Resolving]
  - Skin disorder [Recovering/Resolving]
  - Skin discolouration [Recovering/Resolving]
  - Pruritus [Recovered/Resolved]

NARRATIVE: CASE EVENT DATE: 201708
